FAERS Safety Report 5944297-5 (Version None)
Quarter: 2008Q4

REPORT INFORMATION
  Report Type: 
  Country: None (occurrence: None)
  Receive Date: 20081105
  Receipt Date: 20081029
  Transmission Date: 20090506
  Serious: Yes (Other)
  Sender: FDA-Public Use
  Company Number: CHPA2008US18654

PATIENT
  Age: 71 Year
  Sex: Male
  Weight: 65.8 kg

DRUGS (1)
  1. BENEFIBER W/WHEAT DEXTRIN (NCH) (WHEAT DEXTRIN) POWDER [Suspect]
     Indication: NUTRITIONAL SUPPORT
     Dosage: 3383, 1MG, TID, ORAL
     Route: 048
     Dates: start: 20080801

REACTIONS (1)
  - BLOOD PRESSURE INCREASED [None]
